FAERS Safety Report 23931626 (Version 1)
Quarter: 2024Q2

REPORT INFORMATION
  Report Type: Spontaneous
  Country: FR (occurrence: FR)
  Receive Date: 20240603
  Receipt Date: 20240603
  Transmission Date: 20240715
  Serious: Yes (Hospitalization, Other)
  Sender: FDA-Public Use
  Company Number: FR-SA-SAC20240521001479

PATIENT
  Age: 19 Year
  Sex: Male
  Weight: 73 kg

DRUGS (5)
  1. RIFADIN [Suspect]
     Active Substance: RIFAMPIN
     Indication: Tuberculosis
     Dosage: 600 MG, QD
     Route: 065
  2. RIFADIN [Suspect]
     Active Substance: RIFAMPIN
     Dosage: 900 MG, QD
     Route: 065
  3. RIFATER [Suspect]
     Active Substance: ISONIAZID\PYRAZINAMIDE\RIFAMPIN
     Indication: Pulmonary tuberculosis
     Dosage: 6 DF
     Route: 048
     Dates: start: 20240426, end: 20240427
  4. ALPRAZOLAM [Concomitant]
     Active Substance: ALPRAZOLAM
     Indication: Insomnia
     Dosage: 0.25MG
     Route: 048
     Dates: start: 20240427
  5. NEFOPAM [Concomitant]
     Active Substance: NEFOPAM
     Indication: Pain
     Dosage: 20MG
     Route: 048
     Dates: start: 20240427

REACTIONS (4)
  - Erythema [Unknown]
  - Drug eruption [Unknown]
  - Drug reaction with eosinophilia and systemic symptoms [Unknown]
  - Off label use [Unknown]
